FAERS Safety Report 20370039 (Version 1)
Quarter: 2022Q1

REPORT INFORMATION
  Report Type: Spontaneous
  Country: US (occurrence: None)
  Receive Date: 20220122
  Receipt Date: 20220122
  Transmission Date: 20220423
  Serious: Yes (Life-Threatening, Other)
  Sender: FDA-Public Use
  Company Number: None

PATIENT
  Age: 24 Year
  Sex: Female
  Weight: 58.05 kg

DRUGS (3)
  1. HYDROXYZINE [Suspect]
     Active Substance: HYDROXYZINE HYDROCHLORIDE
     Indication: Anxiety
     Dosage: FREQUENCY : 3 TIMES A DAY;?
     Route: 048
     Dates: start: 20220117, end: 20220119
  2. ADDERALL [Concomitant]
     Active Substance: AMPHETAMINE ASPARTATE\AMPHETAMINE SULFATE\DEXTROAMPHETAMINE SACCHARATE\DEXTROAMPHETAMINE SULFATE
  3. NURTEC ODT [Concomitant]
     Active Substance: RIMEGEPANT SULFATE

REACTIONS (28)
  - Urticaria [None]
  - Dyspnoea [None]
  - Tremor [None]
  - Dystonia [None]
  - Restlessness [None]
  - Agitation [None]
  - Hyperaesthesia [None]
  - Substance-induced psychotic disorder [None]
  - Photophobia [None]
  - Paranoia [None]
  - Pupillary disorder [None]
  - Confusional state [None]
  - Dizziness [None]
  - Tinnitus [None]
  - Ocular hyperaemia [None]
  - Muscle tightness [None]
  - Encephalomyelitis [None]
  - Catatonia [None]
  - Malaise [None]
  - Visual impairment [None]
  - Fear [None]
  - Hallucination [None]
  - Nervousness [None]
  - Movement disorder [None]
  - Thinking abnormal [None]
  - Myalgia [None]
  - Mental disorder [None]
  - Incorrect dose administered [None]

NARRATIVE: CASE EVENT DATE: 20220120
